FAERS Safety Report 6546530-8 (Version None)
Quarter: 2010Q1

REPORT INFORMATION
  Report Type: 
  Country: None (occurrence: None)
  Receive Date: 20100120
  Receipt Date: 20091023
  Transmission Date: 20100710
  Serious: No
  Sender: FDA-Public Use
  Company Number: 2009-00691

PATIENT
  Age: 71 Year
  Sex: Female
  Weight: 69.4003 kg

DRUGS (5)
  1. COLD REMEDY NASAL GEL [Suspect]
     Indication: NASOPHARYNGITIS
     Dosage: SPORADIC - 9 YEARS; 2000-RECENT
     Dates: start: 20000101
  2. COLD REMEDY GEL SWABS [Suspect]
     Indication: NASOPHARYNGITIS
     Dosage: SPORADIC - 7 YEARS; 2002-RECENT
  3. COLD REMEDY ORAL MIST [Suspect]
     Indication: NASOPHARYNGITIS
     Dosage: SPORADIC - 4 YEARS; 2005-RECENT
     Dates: start: 20050101
  4. INTENSE SINUS RELIEF [Suspect]
     Indication: NASOPHARYNGITIS
     Dosage: SPORADIC - 4 YEARS; 2005-RECENT
     Dates: start: 20050101
  5. COLD REMEDY NASAL GEL [Suspect]
     Indication: NASOPHARYNGITIS
     Dosage: SPORADIC - 4 YEARS; 2005-RECENT
     Dates: start: 20050101

REACTIONS (1)
  - ANOSMIA [None]
